FAERS Safety Report 6137486-0 (Version None)
Quarter: 2009Q1

REPORT INFORMATION
  Report Type: 
  Country: None (occurrence: None)
  Receive Date: 20090326
  Receipt Date: 20090317
  Transmission Date: 20090719
  Serious: Yes (Other)
  Sender: FDA-Public Use
  Company Number: 224248

PATIENT
  Age: 17 Year
  Sex: Male

DRUGS (4)
  1. DACARBAZINE FOR INJECTION 200 MG (DACARBAZINE) [Suspect]
     Indication: HODGKIN'S DISEASE
     Dosage: 6 CYCLES;
  2. VINBLASTINE SULPHATE INJECTION (VINBLASTINE) [Suspect]
     Indication: HODGKIN'S DISEASE
     Dosage: 6 CYCLES;
  3. DOXORUBICIN HYDROCHLORIDE INJECTION 2 MG/ML ^DHL^ (DOXORUBICIN) [Suspect]
     Indication: HODGKIN'S DISEASE
     Dosage: 6 CYCLES;
  4. BLEOMYCIN [Suspect]
     Indication: HODGKIN'S DISEASE
     Dosage: 6 CYCLES;

REACTIONS (1)
  - THYMUS ENLARGEMENT [None]
